FAERS Safety Report 5040189-7 (Version None)
Quarter: 2006Q2

REPORT INFORMATION
  Report Type: 
  Country: None (occurrence: None)
  Receive Date: 20060630
  Receipt Date: 20060619
  Transmission Date: 20061013
  Serious: Yes (Hospitalization)
  Sender: FDA-Public Use
  Company Number: 2006SE03456

PATIENT
  Age: 72 Year
  Sex: Male

DRUGS (9)
  1. BLOPRESS [Suspect]
     Route: 048
     Dates: start: 20050301
  2. GLIMEPIRIDE [Suspect]
     Indication: DIABETES MELLITUS NON-INSULIN-DEPENDENT
     Route: 048
     Dates: start: 20050301
  3. (CHINESE MEDICINES) [Suspect]
     Route: 048
     Dates: start: 20050301
  4. (CHINESE MEDICINES) [Suspect]
     Route: 048
  5. AMLODIPINE BESYLATE [Concomitant]
     Route: 048
     Dates: start: 20050301
  6. ASPIRIN [Concomitant]
     Route: 048
     Dates: start: 20050301
  7. LOXOPROFEN SODIUM [Concomitant]
     Route: 048
     Dates: start: 20050301
  8. EPERISONE HYDROCHLORIDE [Concomitant]
     Route: 048
     Dates: start: 20050301
  9. OMEPRAZOLE [Concomitant]
     Route: 048
     Dates: start: 20050301

REACTIONS (3)
  - ANOREXIA [None]
  - FALL [None]
  - HYPOGLYCAEMIA [None]
